FAERS Safety Report 13470952 (Version 1)
Quarter: 2017Q2

REPORT INFORMATION
  Report Type: Spontaneous
  Country: US (occurrence: US)
  Receive Date: 20170424
  Receipt Date: 20170424
  Transmission Date: 20170830
  Serious: No
  Sender: FDA-Public Use
  Company Number: US-TEVA-680171USA

PATIENT
  Sex: Male
  Weight: 106.69 kg

DRUGS (1)
  1. LOSARTAN. [Suspect]
     Active Substance: LOSARTAN
     Indication: BLOOD PRESSURE MEASUREMENT

REACTIONS (6)
  - Viral upper respiratory tract infection [Unknown]
  - Back pain [Unknown]
  - Peripheral swelling [Unknown]
  - Dizziness [Unknown]
  - Drug ineffective [Unknown]
  - Nasal congestion [Unknown]
